FAERS Safety Report 4735028-5 (Version None)
Quarter: 2005Q3

REPORT INFORMATION
  Report Type: 
  Country: None (occurrence: None)
  Receive Date: 20050804
  Receipt Date: 20050727
  Transmission Date: 20060218
  Serious: Yes (Other)
  Sender: FDA-Public Use
  Company Number: PHBS2005JP11078

PATIENT

DRUGS (4)
  1. LOCHOL [Suspect]
  2. CLARITHROMYCIN [Suspect]
     Route: 048
  3. ASPIRIN [Concomitant]
     Route: 048
  4. PANALDINE [Concomitant]
     Route: 048

REACTIONS (5)
  - BLOOD PRESSURE DECREASED [None]
  - DIZZINESS [None]
  - DRUG INTERACTION [None]
  - HYPOTENSION [None]
  - MALAISE [None]
